FAERS Safety Report 15721208 (Version 1)
Quarter: 2018Q4

REPORT INFORMATION
  Report Type: Spontaneous
  Country: US (occurrence: US)
  Receive Date: 20181214
  Receipt Date: 20181214
  Transmission Date: 20190205
  Serious: Yes (Hospitalization, Other)
  Sender: FDA-Public Use
  Company Number: US-UCBSA-2018053887

PATIENT
  Age: 13 Year
  Sex: Female
  Weight: 64.7 kg

DRUGS (1)
  1. LEVETIRACETAM. [Suspect]
     Active Substance: LEVETIRACETAM
     Indication: GENERALISED TONIC-CLONIC SEIZURE
     Dosage: 250 MG, 3X/DAY (TID)
     Route: 048

REACTIONS (2)
  - Meningitis aseptic [Recovered/Resolved]
  - Off label use [Unknown]
